FAERS Safety Report 8273756-8 (Version None)
Quarter: 2012Q2

REPORT INFORMATION
  Report Type: 
  Country: None (occurrence: None)
  Receive Date: 20120411
  Receipt Date: 20120327
  Transmission Date: 20120825
  Serious: Yes (Other)
  Sender: FDA-Public Use
  Company Number: US-SHIRE-ALL1-2012-01676

PATIENT
  Sex: Female
  Weight: 56.689 kg

DRUGS (4)
  1. VYVANSE [Suspect]
     Dosage: 30 MG, 1X/DAY:QD
     Route: 048
     Dates: start: 20110801, end: 20110101
  2. VYVANSE [Suspect]
     Indication: ATTENTION DEFICIT/HYPERACTIVITY DISORDER
     Dosage: 70 MG, 1X/DAY:QD
     Route: 048
     Dates: start: 20111001, end: 20120201
  3. VYVANSE [Suspect]
     Indication: NARCOLEPSY
     Dosage: 100 MG, OTHER (50 MG CAPSULE IN AM AND 50 MG CAPSULE IN PM)
     Route: 048
     Dates: start: 20120201, end: 20120327
  4. VYVANSE [Suspect]
     Dosage: 50 MG, 1X/DAY:QD
     Route: 048
     Dates: start: 20110101, end: 20111001

REACTIONS (16)
  - ECZEMA [None]
  - STRESS [None]
  - ASTHENIA [None]
  - OVERDOSE [None]
  - DRUG PRESCRIBING ERROR [None]
  - TOXICITY TO VARIOUS AGENTS [None]
  - CHEST DISCOMFORT [None]
  - TOXIC EPIDERMAL NECROLYSIS [None]
  - DYSPNOEA [None]
  - BLOOD POTASSIUM DECREASED [None]
  - PAINFUL RESPIRATION [None]
  - FATIGUE [None]
  - SKIN REACTION [None]
  - DRUG EFFECT DECREASED [None]
  - POOR PERIPHERAL CIRCULATION [None]
  - ADVERSE DRUG REACTION [None]
